FAERS Safety Report 5030157-3 (Version None)
Quarter: 2006Q2

REPORT INFORMATION
  Report Type: 
  Country: None (occurrence: None)
  Receive Date: 20060614
  Receipt Date: 20060602
  Transmission Date: 20061013
  Serious: Yes (Hospitalization)
  Sender: FDA-Public Use
  Company Number: GXKR2006DE03167

PATIENT
  Age: 10 Year
  Sex: Male

DRUGS (3)
  1. CARBOPLATIN [Suspect]
     Indication: STEM CELL TRANSPLANT
     Dosage: 500 MG/M2
     Dates: start: 20050501
  2. ETOPOSIDE [Suspect]
     Indication: STEM CELL TRANSPLANT
     Dosage: 250 MG/M2
     Dates: start: 20050501
  3. THIOTEPA [Suspect]
     Dosage: 150 MG/M2
     Dates: start: 20050501

REACTIONS (10)
  - ABDOMINAL DISTENSION [None]
  - ABDOMINAL PAIN [None]
  - ASPERGILLOSIS [None]
  - CLOSTRIDIUM DIFFICILE COLITIS [None]
  - CONSTIPATION [None]
  - FEBRILE NEUTROPENIA [None]
  - HEPATIC ENZYME INCREASED [None]
  - NECROTISING COLITIS [None]
  - PNEUMATOSIS INTESTINALIS [None]
  - VOMITING [None]
